FAERS Safety Report 5128092-5 (Version None)
Quarter: 2006Q4

REPORT INFORMATION
  Report Type: 
  Country: None (occurrence: None)
  Receive Date: 20061003
  Receipt Date: 20000126
  Transmission Date: 20070319
  Serious: Yes (Life-Threatening, Hospitalization, Other)
  Sender: FDA-Public Use
  Company Number: 501625

PATIENT
  Age: 68 Year
  Sex: Male
  Weight: 90 kg

DRUGS (7)
  1. FEIBA VH IMMUNO [Suspect]
     Indication: SIGMOIDECTOMY
     Dosage: 66.7 IU; 3Z A DAY; IV
     Route: 042
     Dates: start: 20000103, end: 20000112
  2. METRONIDAZOLE [Concomitant]
  3. OMEPRAZOLE [Concomitant]
  4. KETOBEMIDON [Concomitant]
  5. PRO-DAFALGAN [Concomitant]
  6. CALYCERYLNITRATE [Concomitant]
  7. TRANEXAMIC ACID [Concomitant]

REACTIONS (3)
  - MALLORY-WEISS SYNDROME [None]
  - MYOCARDIAL INFARCTION [None]
  - POST PROCEDURAL COMPLICATION [None]
